FAERS Safety Report 5682331-0 (Version None)
Quarter: 2008Q1

REPORT INFORMATION
  Report Type: 
  Country: None (occurrence: None)
  Receive Date: 20080327
  Receipt Date: 20080319
  Transmission Date: 20080703
  Serious: Yes (Death, Life-Threatening, Hospitalization, Other)
  Sender: FDA-Public Use
  Company Number: GB-TEVA-168975ISR

PATIENT
  Age: 84 Year
  Sex: Female

DRUGS (1)
  1. METRONIDAZOLE HCL [Suspect]
     Dates: start: 20080208, end: 20080211

REACTIONS (4)
  - BLISTER [None]
  - DEHYDRATION [None]
  - DISEASE PROGRESSION [None]
  - PAIN [None]
